FAERS Safety Report 5089898-4 (Version None)
Quarter: 2006Q3

REPORT INFORMATION
  Report Type: 
  Country: None (occurrence: None)
  Receive Date: 20060727
  Receipt Date: 20060524
  Transmission Date: 20061208
  Serious: Yes (Other)
  Sender: FDA-Public Use
  Company Number: 2006069564

PATIENT
  Age: 75 Year
  Sex: Male
  Weight: 86.1834 kg

DRUGS (2)
  1. LYRICA [Suspect]
     Indication: NEUROPATHY PERIPHERAL
     Dosage: 150 MG (75 MG,2 IN 1 D)
     Route: 065
     Dates: start: 20060501
  2. VITAMINS (VITAMINS) [Concomitant]

REACTIONS (2)
  - CHROMATURIA [None]
  - TESTICULAR SWELLING [None]
